FAERS Safety Report 25992778 (Version 2)
Quarter: 2025Q4

REPORT INFORMATION
  Report Type: Report from Study
  Country: EU (occurrence: EU)
  Receive Date: 20251103
  Receipt Date: 20251107
  Transmission Date: 20260117
  Serious: Yes (Hospitalization)
  Sender: JOHNSON AND JOHNSON
  Company Number: EU-JNJFOC-20251034119

PATIENT
  Sex: Male
  Weight: 70 kg

DRUGS (6)
  1. DARATUMUMAB [Suspect]
     Active Substance: DARATUMUMAB
     Indication: Plasma cell myeloma
     Dosage: LAST DOSE BEFORE SAE; 06-OCT-2025, 30 DAYS AFTER THERAPY: 05-NOV-2025
     Route: 058
     Dates: start: 20250929
  2. BORTEZOMIB [Suspect]
     Active Substance: BORTEZOMIB
     Indication: Plasma cell myeloma
     Dosage: LAST DOSE BEFORE SAE; 06-OCT-2025, 30 DAYS AFTER THERAPY: 08-NOV-2025
     Route: 058
     Dates: start: 20250929
  3. DEXAMETHASONE [Suspect]
     Active Substance: DEXAMETHASONE
     Indication: Plasma cell myeloma
     Dosage: LAST DOSE BEFORE SAE: 10-OCT-2025, 30 DAYS AFTER THERAPY: 09-NOV-2025
     Route: 048
     Dates: start: 20250930
  4. DEXAMETHASONE [Suspect]
     Active Substance: DEXAMETHASONE
     Dosage: LAST DOSE BEFORE SAE: 09-OCT-2025, 30 DAYS AFTER THERAPY: 08-NOV-2025
     Route: 048
     Dates: start: 20250929
  5. LENALIDOMIDE [Suspect]
     Active Substance: LENALIDOMIDE
     Indication: Plasma cell myeloma
     Dosage: LAST DOSE BEFORE SAE: 10-OCT-2025, 30 DAYS AFTER THERAPY: 09-NOV-2025
     Route: 048
     Dates: start: 20250929
  6. ASPIRIN [Concomitant]
     Active Substance: ASPIRIN
     Indication: Product used for unknown indication
     Route: 048
     Dates: start: 20251021

REACTIONS (1)
  - Coronary artery disease [Recovered/Resolved]

NARRATIVE: CASE EVENT DATE: 20251011
